FAERS Safety Report 25195999 (Version 1)
Quarter: 2025Q2

REPORT INFORMATION
  Report Type: Spontaneous
  Country: JP (occurrence: JP)
  Receive Date: 20250415
  Receipt Date: 20250415
  Transmission Date: 20250716
  Serious: Yes (Hospitalization, Other)
  Sender: GLAXOSMITHKLINE
  Company Number: JP-GSKJP-JP2025JPN041797AA

PATIENT

DRUGS (2)
  1. LAMICTAL [Suspect]
     Active Substance: LAMOTRIGINE
  2. LEVETIRACETAM [Suspect]
     Active Substance: LEVETIRACETAM

REACTIONS (7)
  - Ventricular tachycardia [Recovering/Resolving]
  - Generalised tonic-clonic seizure [Unknown]
  - Altered state of consciousness [Recovering/Resolving]
  - Respiratory acidosis [Unknown]
  - Toxicity to various agents [Unknown]
  - Dyspnoea [Unknown]
  - Overdose [Unknown]
